FAERS Safety Report 21883069 (Version 1)
Quarter: 2023Q1

REPORT INFORMATION
  Report Type: Spontaneous
  Country: DE (occurrence: None)
  Receive Date: 20230119
  Receipt Date: 20230119
  Transmission Date: 20230418
  Serious: Yes (Other)
  Sender: FDA-Public Use
  Company Number: DE-ROCHE-3266786

PATIENT
  Sex: Male

DRUGS (10)
  1. RITUXIMAB [Suspect]
     Active Substance: RITUXIMAB
     Indication: Diffuse large B-cell lymphoma
     Dosage: FIRST LINE WITH CHOP
     Route: 041
     Dates: start: 20210101, end: 20210601
  2. RITUXIMAB [Suspect]
     Active Substance: RITUXIMAB
     Dosage: FOURTH LINE WITH GEMCITABIN AND OXALIPLATIN
     Route: 041
     Dates: start: 20221118, end: 20221119
  3. POLIVY [Suspect]
     Active Substance: POLATUZUMAB VEDOTIN-PIIQ
     Indication: Diffuse large B-cell lymphoma
     Dosage: THIRD LINE WITH BENDAMUSTINE
     Route: 065
     Dates: start: 20220601, end: 20221001
  4. CYCLOPHOSPHAMIDE\DOXORUBICIN\PREDNISONE\VINCRISTINE [Suspect]
     Active Substance: CYCLOPHOSPHAMIDE\DOXORUBICIN\PREDNISONE\VINCRISTINE
     Indication: Diffuse large B-cell lymphoma
     Dosage: FIRST LINE WITH RITUXIMAB
     Route: 065
     Dates: start: 20210101, end: 20210601
  5. TAFASITAMAB-CXIX [Suspect]
     Active Substance: TAFASITAMAB-CXIX
     Indication: Diffuse large B-cell lymphoma
     Dosage: SECOND LINE WITH LENALIDOMID
     Route: 065
     Dates: start: 20211201, end: 20220501
  6. LENALIDOMIDE [Suspect]
     Active Substance: LENALIDOMIDE
     Indication: Diffuse large B-cell lymphoma
     Dosage: SECOND LINE WITH TAFASITAMAB
     Route: 065
     Dates: start: 20211201, end: 20220501
  7. GEMCITABINE [Suspect]
     Active Substance: GEMCITABINE
     Indication: Diffuse large B-cell lymphoma
     Dosage: FOURTH LINE WITH OXALIPLATIN
     Route: 065
     Dates: start: 20221118, end: 20221119
  8. OXALIPLATIN [Suspect]
     Active Substance: OXALIPLATIN
     Indication: Diffuse large B-cell lymphoma
     Dosage: FOURTH LINE WITH GEMCITABIN
     Route: 065
     Dates: start: 20221118, end: 20221119
  9. PIPERACILLIN [Suspect]
     Active Substance: PIPERACILLIN
     Indication: Infection
     Route: 065
  10. TAZOBACTAM [Suspect]
     Active Substance: TAZOBACTAM
     Indication: Infection
     Route: 065

REACTIONS (3)
  - Lymphoma [Unknown]
  - Infection [Unknown]
  - C-reactive protein decreased [Unknown]
